FAERS Safety Report 6344616-4 (Version None)
Quarter: 2009Q3

REPORT INFORMATION
  Report Type: 
  Country: None (occurrence: None)
  Receive Date: 20090903
  Receipt Date: 20090825
  Transmission Date: 20100115
  Serious: Yes (Other)
  Sender: FDA-Public Use
  Company Number: 366967

PATIENT
  Age: 55 Year
  Sex: Male

DRUGS (5)
  1. VANCOMYCIN [Suspect]
     Indication: EVIDENCE BASED TREATMENT
     Dosage: INTRAVENOUS
  2. EMTRICITABINE W/TENOFOVIR [Suspect]
     Indication: ACQUIRED IMMUNODEFICIENCY SYNDROME
  3. ATAZANAVIR [Concomitant]
  4. RITONAVIR [Concomitant]
  5. CEFEPIME [Concomitant]

REACTIONS (5)
  - DRUG INTERACTION [None]
  - OSTEOMYELITIS [None]
  - PERIOSTITIS [None]
  - RENAL FAILURE ACUTE [None]
  - SKIN ULCER [None]
